FAERS Safety Report 11931468 (Version 1)
Quarter: 2016Q1

REPORT INFORMATION
  Report Type: Spontaneous
  Country: US (occurrence: US)
  Receive Date: 20160120
  Receipt Date: 20160120
  Transmission Date: 20160526
  Serious: No
  Sender: FDA-Public Use
  Company Number: US-INCYTE CORPORATION-2015IN005707

PATIENT
  Sex: Male
  Weight: 75.28 kg

DRUGS (8)
  1. MULTIVITAMIN                       /00097801/ [Concomitant]
     Active Substance: VITAMINS
  2. METOPROLOL. [Concomitant]
     Active Substance: METOPROLOL
  3. JAKAFI [Suspect]
     Active Substance: RUXOLITINIB
     Indication: MYELOFIBROSIS
     Dosage: 20 MG, BID
     Route: 048
     Dates: start: 201510
  4. HYDROCODONE [Concomitant]
     Active Substance: HYDROCODONE
  5. B COMPLEX                          /00212701/ [Concomitant]
  6. PROBIOTIC                          /06395501/ [Concomitant]
     Active Substance: BIFIDOBACTERIUM ANIMALIS SUBSP. LACTIS
  7. PROBENECID AND COLCHICINE [Concomitant]
     Active Substance: COLCHICINE\PROBENECID
  8. JANTOVEN [Concomitant]
     Active Substance: WARFARIN SODIUM

REACTIONS (4)
  - Spleen disorder [Unknown]
  - Nasopharyngitis [Unknown]
  - International normalised ratio decreased [Unknown]
  - Cough [Unknown]
